FAERS Safety Report 8282138-4 (Version None)
Quarter: 2012Q2

REPORT INFORMATION
  Report Type: 
  Country: None (occurrence: None)
  Receive Date: 20120413
  Receipt Date: 20120406
  Transmission Date: 20120825
  Serious: Yes (Hospitalization)
  Sender: FDA-Public Use
  Company Number: JP-FRI-1000029752

PATIENT
  Age: 81 Year
  Sex: Female

DRUGS (9)
  1. MEMANTINE [Suspect]
     Dosage: 15 MG
     Route: 048
  2. CALBLOCK [Concomitant]
  3. MEMANTINE [Suspect]
     Indication: DEMENTIA
     Dosage: 5 MG
     Route: 048
     Dates: start: 20120101
  4. HOKUNALIN TAPE [Concomitant]
  5. MEMANTINE [Suspect]
     Dosage: 10 MG
     Route: 048
  6. MEMANTINE [Suspect]
     Dosage: 20 MG
     Route: 048
     Dates: end: 20120331
  7. IRBESARTAN [Concomitant]
  8. ARICEPT [Concomitant]
  9. MUCODYNE [Concomitant]

REACTIONS (1)
  - PNEUMONITIS [None]
